FAERS Safety Report 24314560 (Version 2)
Quarter: 2024Q4

REPORT INFORMATION
  Report Type: Spontaneous
  Country: DK (occurrence: DK)
  Receive Date: 20240913
  Receipt Date: 20241004
  Transmission Date: 20250115
  Serious: Yes (Hospitalization)
  Sender: NOVO NORDISK
  Company Number: DK-NOVOPROD-1266881

PATIENT
  Age: 62 Year
  Sex: Female
  Weight: 85 kg

DRUGS (1)
  1. WEGOVY [Suspect]
     Active Substance: SEMAGLUTIDE
     Indication: Obesity
     Dosage: 0.50 MG, QW
     Dates: start: 20240523, end: 20240711

REACTIONS (1)
  - VIth nerve disorder [Not Recovered/Not Resolved]

NARRATIVE: CASE EVENT DATE: 20240712
